FAERS Safety Report 9397218 (Version 1)
Quarter: 2013Q3

REPORT INFORMATION
  Report Type: Spontaneous
  Country: US (occurrence: US)
  Receive Date: 20130712
  Receipt Date: 20130712
  Transmission Date: 20140515
  Serious: No
  Sender: FDA-Public Use
  Company Number: US-GLAXOSMITHKLINE-A1020219A

PATIENT
  Age: 75 Year
  Sex: Male

DRUGS (4)
  1. JALYN [Suspect]
     Indication: PROSTATOMEGALY
     Dosage: 1CAP PER DAY
     Route: 048
     Dates: start: 201304
  2. PRILOSEC [Concomitant]
  3. TRAMADOL [Concomitant]
  4. PREDNISONE [Concomitant]

REACTIONS (4)
  - Dyspnoea [Not Recovered/Not Resolved]
  - Wheezing [Not Recovered/Not Resolved]
  - Chills [Not Recovered/Not Resolved]
  - Nasopharyngitis [Not Recovered/Not Resolved]
